FAERS Safety Report 10139303 (Version 2)
Quarter: 2014Q2

REPORT INFORMATION
  Report Type: Spontaneous
  Country: IT (occurrence: IT)
  Receive Date: 20140429
  Receipt Date: 20140501
  Transmission Date: 20141212
  Serious: Yes (Hospitalization)
  Sender: FDA-Public Use
  Company Number: IT-JNJFOC-20140418070

PATIENT
  Age: 50 Year
  Sex: Female
  Weight: 60 kg

DRUGS (8)
  1. REMICADE [Suspect]
     Indication: RHEUMATOID ARTHRITIS
     Route: 042
  2. REMICADE [Suspect]
     Indication: RHEUMATOID ARTHRITIS
     Route: 042
     Dates: start: 20021101
  3. REMICADE [Suspect]
     Indication: RHEUMATOID ARTHRITIS
     Route: 042
     Dates: start: 20101101, end: 20101101
  4. METHOTREXATE [Concomitant]
     Dosage: 15MH/2ML
     Route: 030
  5. CARDIOASPIRIN [Concomitant]
     Route: 048
  6. LEDERFOLINE [Concomitant]
     Route: 048
  7. EUTIROX [Concomitant]
     Route: 048
  8. NEXIUM [Concomitant]
     Route: 048

REACTIONS (4)
  - Convulsion [Recovering/Resolving]
  - Meningitis aseptic [Recovering/Resolving]
  - Clonic convulsion [Recovering/Resolving]
  - Fibromyalgia [Unknown]
